FAERS Safety Report 18031483 (Version 2)
Quarter: 2020Q3

REPORT INFORMATION
  Report Type: Spontaneous
  Country: US (occurrence: US)
  Receive Date: 20200716
  Receipt Date: 20200901
  Transmission Date: 20201103
  Serious: No
  Sender: FDA-Public Use
  Company Number: US-PFIZER INC-2020270403

PATIENT
  Age: 38 Year
  Sex: Female

DRUGS (1)
  1. XELJANZ XR [Suspect]
     Active Substance: TOFACITINIB CITRATE
     Indication: RHEUMATOID ARTHRITIS
     Dosage: 11 MG, DAILY
     Route: 048
     Dates: start: 202007

REACTIONS (15)
  - Product dose omission issue [Unknown]
  - Fatigue [Unknown]
  - Arthropathy [Unknown]
  - Abdominal discomfort [Unknown]
  - Headache [Unknown]
  - Depressed mood [Unknown]
  - Vomiting [Unknown]
  - Hand deformity [Unknown]
  - Illness [Unknown]
  - Finger deformity [Unknown]
  - Sleep disorder [Unknown]
  - Arthralgia [Unknown]
  - Fatigue [Unknown]
  - Feeling abnormal [Unknown]
  - Nodule [Unknown]

NARRATIVE: CASE EVENT DATE: 202007
